FAERS Safety Report 7833249-6 (Version None)
Quarter: 2011Q4

REPORT INFORMATION
  Report Type: 
  Country: None (occurrence: None)
  Receive Date: 20111024
  Receipt Date: 20111013
  Transmission Date: 20120403
  Serious: Yes (Other)
  Sender: FDA-Public Use
  Company Number: BR-JNJFOC-20111007525

PATIENT
  Age: 55 Year
  Sex: Male

DRUGS (7)
  1. TRILEPTAL [Concomitant]
     Indication: PRODUCT USED FOR UNKNOWN INDICATION
     Route: 065
  2. PHENERGAN [Concomitant]
     Indication: HYPERSENSITIVITY
     Route: 065
  3. LEVOTHYROXINE SODIUM [Concomitant]
     Indication: HYPOTHYROIDISM
     Route: 065
  4. HALDOL [Suspect]
     Indication: PSYCHOTIC DISORDER
     Route: 065
  5. LANSOPRAZOLE [Concomitant]
     Indication: GASTRITIS
     Route: 065
  6. DALMADORM [Concomitant]
     Indication: INSOMNIA
     Route: 065
  7. BIPERIDEN HYDROCHLORIDE TAB [Concomitant]
     Indication: PRODUCT USED FOR UNKNOWN INDICATION
     Route: 065

REACTIONS (4)
  - AGITATION [None]
  - PSYCHOTIC DISORDER [None]
  - HYPERTENSION [None]
  - FLUSHING [None]
